FAERS Safety Report 8196106-4 (Version None)
Quarter: 2012Q1

REPORT INFORMATION
  Report Type: 
  Country: None (occurrence: None)
  Receive Date: 20120223
  Receipt Date: 20110610
  Transmission Date: 20120608
  Serious: Yes (Other)
  Sender: FDA-Public Use
  Company Number: WAES 1106USA01452

PATIENT
  Age: 70 Year
  Sex: Female

DRUGS (1)
  1. ZOCOR [Suspect]
     Dosage: 80 MG/DAILY/PO
     Route: 048

REACTIONS (1)
  - RHABDOMYOLYSIS [None]
